FAERS Safety Report 9528761 (Version 2)
Quarter: 2013Q3

REPORT INFORMATION
  Report Type: Spontaneous
  Country: US (occurrence: US)
  Receive Date: 20130917
  Receipt Date: 20130917
  Transmission Date: 20140515
  Serious: No
  Sender: FDA-Public Use
  Company Number: US-BANPHARM-20131313

PATIENT
  Sex: Female

DRUGS (4)
  1. ZYRTEC LIQUID GELS 10 MG [Suspect]
     Indication: HYPERSENSITIVITY
     Dosage: 1 DF, QD,
     Route: 048
  2. HIGH BLOOD PRESSURE MEDICATION [Concomitant]
  3. VITAMINS [Concomitant]
  4. CHOLESTEROL MEDICATION [Concomitant]

REACTIONS (2)
  - Therapeutic response unexpected with drug substitution [Unknown]
  - Drug ineffective [Unknown]
